FAERS Safety Report 4473982-X (Version None)
Quarter: 2004Q4

REPORT INFORMATION
  Report Type: 
  Country: None (occurrence: None)
  Receive Date: 20041013
  Receipt Date: 20041013
  Transmission Date: 20050328
  Serious: No
  Sender: FDA-Public Use
  Company Number: None

PATIENT
  Sex: Male
  Weight: 106.5953 kg

DRUGS (1)
  1. LITHIUM CARBONATE [Suspect]
     Indication: BIPOLAR DISORDER
     Dosage: 300 MG ONE AM TWO HS

REACTIONS (3)
  - DRUG INEFFECTIVE [None]
  - MANIA [None]
  - PHARMACEUTICAL PRODUCT COMPLAINT [None]
